FAERS Safety Report 6092647-4 (Version None)
Quarter: 2009Q1

REPORT INFORMATION
  Report Type: 
  Country: None (occurrence: None)
  Receive Date: 20090225
  Receipt Date: 20090216
  Transmission Date: 20090719
  Serious: Yes (Life-Threatening, Hospitalization, Disabling)
  Sender: FDA-Public Use
  Company Number: PL-CELGENEUS-THAPL200700289

PATIENT
  Sex: Female

DRUGS (6)
  1. THALIDOMIDE [Suspect]
     Indication: MULTIPLE MYELOMA
     Route: 048
     Dates: start: 20070423
  2. BISOCARD [Concomitant]
     Indication: HYPERTENSION
     Dates: start: 20070524, end: 20070613
  3. TERTENSIF SR [Concomitant]
     Indication: HYPERTENSION
  4. AMLOZEK [Concomitant]
     Indication: HYPERTENSION
  5. ACARD [Concomitant]
     Indication: PROPHYLAXIS
     Dates: start: 20070423
  6. HYDROXYZINE [Concomitant]

REACTIONS (1)
  - ADAMS-STOKES SYNDROME [None]
